FAERS Safety Report 4810800-1 (Version None)
Quarter: 2005Q4

REPORT INFORMATION
  Report Type: 
  Country: None (occurrence: None)
  Receive Date: 20051024
  Receipt Date: 20051012
  Transmission Date: 20060501
  Serious: Yes (Other)
  Sender: FDA-Public Use
  Company Number: 2005141072

PATIENT
  Sex: Female
  Weight: 54.4316 kg

DRUGS (3)
  1. BENGAY PAIN RELIEVING PATCH (MENTHOL) [Suspect]
     Indication: BACK PAIN
     Dosage: 1 PATCH FOR 2 DAYS, TOPICAL
     Route: 061
     Dates: start: 20050101, end: 20050101
  2. DRUG, UNSPECIFIED (DRUG, UNSPECIFIED) [Concomitant]
  3. IBUPROFEN (IBRUPROFEN) [Concomitant]

REACTIONS (4)
  - APPLICATION SITE BURN [None]
  - BLISTER [None]
  - BURNS SECOND DEGREE [None]
  - SCAR [None]
